FAERS Safety Report 8886464 (Version 1)
Quarter: 2012Q4

REPORT INFORMATION
  Report Type: Report from Study
  Country: US (occurrence: US)
  Receive Date: 20121105
  Receipt Date: 20121105
  Transmission Date: 20130627
  Serious: Yes (Life-Threatening, Hospitalization)
  Sender: FDA-Public Use
  Company Number: US-GLAXOSMITHKLINE-Z0017463A

PATIENT
  Age: 45 Year
  Sex: Female
  Weight: 128 kg

DRUGS (10)
  1. PAZOPANIB [Suspect]
     Indication: RENAL CELL CARCINOMA
     Route: 048
     Dates: start: 20121017
  2. KEPPRA [Concomitant]
     Indication: CONVULSION
     Dosage: 500MG Twice per day
     Route: 048
     Dates: start: 20121026
  3. XANAX [Concomitant]
     Indication: DEPRESSION
     Dosage: .3MG Twice per day
     Route: 048
     Dates: start: 20121026
  4. ATENOLOL [Concomitant]
     Indication: HYPERTENSION
     Dosage: 25MG Four times per day
     Route: 048
     Dates: start: 1990
  5. TRAZODONE [Concomitant]
     Indication: DEPRESSION
     Dosage: 300MG Per day
     Route: 048
     Dates: start: 2002
  6. PROZAC [Concomitant]
     Indication: DEPRESSION
     Dosage: 40MG Per day
     Route: 048
     Dates: start: 2002
  7. LORAZEPAM [Concomitant]
     Indication: DEPRESSION
     Dosage: .5MG As required
     Route: 048
     Dates: start: 2002
  8. BUPROPION HCL [Concomitant]
     Indication: DEPRESSION
     Dosage: 225MG Per day
     Route: 048
     Dates: start: 201210
  9. TYLENOL [Concomitant]
     Indication: HEADACHE
     Dosage: 352MG As required
     Route: 048
     Dates: start: 2000
  10. MIDOL [Concomitant]
     Indication: MENSTRUAL DISCOMFORT
     Dosage: 220MG As required
     Route: 048
     Dates: start: 1990

REACTIONS (1)
  - Convulsion [Recovered/Resolved with Sequelae]
